FAERS Safety Report 10061790 (Version 1)
Quarter: 2014Q2

REPORT INFORMATION
  Report Type: Spontaneous
  Country: US (occurrence: None)
  Receive Date: 20140404
  Receipt Date: 20140404
  Transmission Date: 20141212
  Serious: Yes (Other)
  Sender: FDA-Public Use
  Company Number: None

PATIENT
  Age: 28 Day
  Sex: Female
  Weight: 63.5 kg

DRUGS (1)
  1. METHYLPHENIDATE ER 54 MG MALLINCKRODT [Suspect]
     Indication: ATTENTION DEFICIT/HYPERACTIVITY DISORDER
     Dosage: 1 TABLET ONCE DAILY TAKEN BY MOUTH
     Route: 048
     Dates: start: 20140328, end: 20140403

REACTIONS (8)
  - Drug ineffective [None]
  - Nausea [None]
  - Fatigue [None]
  - Mood swings [None]
  - Feeling jittery [None]
  - Anxiety [None]
  - Product substitution issue [None]
  - Migraine [None]
